FAERS Safety Report 9713337 (Version 3)
Quarter: 2014Q2

REPORT INFORMATION
  Report Type: Spontaneous
  Country: US (occurrence: US)
  Receive Date: 20131126
  Receipt Date: 20140403
  Transmission Date: 20141212
  Serious: Yes (Other)
  Sender: FDA-Public Use
  Company Number: US-TEVA-445649USA

PATIENT
  Age: 22 Year
  Sex: Female
  Weight: 76.27 kg

DRUGS (2)
  1. PARAGARD 380A [Suspect]
     Indication: CONTRACEPTION
     Route: 015
     Dates: start: 20120323, end: 20120507
  2. PARAGARD 380A [Suspect]
     Route: 015
     Dates: start: 20120830, end: 20140226

REACTIONS (6)
  - Device dislocation [Recovered/Resolved]
  - Haemorrhage [Recovered/Resolved]
  - Metrorrhagia [Recovered/Resolved]
  - Muscle spasms [Recovered/Resolved]
  - Pain [Recovered/Resolved]
  - Device expulsion [Recovered/Resolved]
